FAERS Safety Report 4314825-4 (Version None)
Quarter: 2004Q1

REPORT INFORMATION
  Report Type: 
  Country: None (occurrence: None)
  Receive Date: 20040308
  Receipt Date: 20040223
  Transmission Date: 20041129
  Serious: Yes (Other)
  Sender: FDA-Public Use
  Company Number: GBWYE601825FEB04

PATIENT
  Age: 30 Year
  Sex: Male

DRUGS (2)
  1. LODINE [Suspect]
  2. TRAMADOL HCL [Concomitant]

REACTIONS (1)
  - CONVULSION [None]
